FAERS Safety Report 4806333-9 (Version None)
Quarter: 2005Q4

REPORT INFORMATION
  Report Type: 
  Country: None (occurrence: None)
  Receive Date: 20051019
  Receipt Date: 20051011
  Transmission Date: 20060501
  Serious: Yes (Other)
  Sender: FDA-Public Use
  Company Number: 2005141167

PATIENT
  Sex: Female

DRUGS (3)
  1. LYRICA [Suspect]
     Indication: DIABETIC NEUROPATHY
     Dosage: 300 MG (100 MG, 3 IN 1 D)
  2. DURAGESIC-100 [Suspect]
     Indication: ILL-DEFINED DISORDER
  3. DARVOCET [Suspect]
     Indication: ILL-DEFINED DISORDER

REACTIONS (1)
  - LOSS OF CONSCIOUSNESS [None]
